FAERS Safety Report 4566525-3 (Version None)
Quarter: 2005Q1

REPORT INFORMATION
  Report Type: 
  Country: None (occurrence: None)
  Receive Date: 20050126
  Receipt Date: 20050126
  Transmission Date: 20050727
  Serious: Yes (Other)
  Sender: FDA-Public Use
  Company Number: None

PATIENT
  Age: 79 Year
  Sex: Male
  Weight: 67.6 kg

DRUGS (19)
  1. LITHIUM CARBONATE [Suspect]
     Indication: CONDITION AGGRAVATED
     Dosage: 150MG  QAM + QHS  ORAL
     Route: 048
     Dates: start: 20041222, end: 20041229
  2. LITHIUM CARBONATE [Suspect]
     Indication: SCHIZOPHRENIA, PARANOID TYPE
     Dosage: 150MG  QAM + QHS  ORAL
     Route: 048
     Dates: start: 20041222, end: 20041229
  3. RISPERIDONE [Suspect]
     Indication: HYPONATRAEMIA
     Dosage: 7MG  QHS   ORAL
     Route: 048
     Dates: start: 20041221, end: 20041229
  4. RISPERIDONE [Suspect]
     Indication: POLYDIPSIA
     Dosage: 7MG  QHS   ORAL
     Route: 048
     Dates: start: 20041221, end: 20041229
  5. ACETAMINOPHEN [Concomitant]
  6. ALBUTEROL [Concomitant]
  7. ASPIRIN [Concomitant]
  8. ATROVENT [Concomitant]
  9. DIOVAN [Concomitant]
  10. DOCUSATE [Concomitant]
  11. FLOVENT [Concomitant]
  12. LEVOTHYROXINE [Concomitant]
  13. LIPITOR [Concomitant]
  14. LORAZEPAM [Concomitant]
  15. MOM [Concomitant]
  16. PHENYTOIN [Concomitant]
  17. RANITIDINE [Concomitant]
  18. BISACODYL [Concomitant]
  19. ALUMINUM HYDROXIDE AND MAGNESIUM TRISILICATE [Concomitant]

REACTIONS (3)
  - AKATHISIA [None]
  - DYSTONIA [None]
  - FALL [None]
